FAERS Safety Report 7098139-8 (Version None)
Quarter: 2010Q4

REPORT INFORMATION
  Report Type: 
  Country: None (occurrence: None)
  Receive Date: 20101105
  Receipt Date: 20101020
  Transmission Date: 20110411
  Serious: Yes (Life-Threatening, Hospitalization)
  Sender: FDA-Public Use
  Company Number: AMAG201000381

PATIENT
  Age: 71 Year
  Sex: Male
  Weight: 64.9 kg

DRUGS (8)
  1. FERAHEME [Suspect]
     Indication: IRON DEFICIENCY ANAEMIA
     Dosage: SINGLE, INTRAVENOUS
     Route: 042
     Dates: start: 20101019, end: 20101019
  2. CARVEDILOL [Concomitant]
  3. AMIODARONE (AMIODARONE HYDROCHLORIDE) [Concomitant]
  4. LASIX [Concomitant]
  5. POTASSIUM CHLORIDE [Concomitant]
  6. TAMSULOSIN HCL [Concomitant]
  7. XALATAN [Concomitant]
  8. COSOPT (DORZOLAMIDE HYDROCHLORIE, TIMOLOL MALEATE) [Concomitant]

REACTIONS (17)
  - ANAPHYLACTOID REACTION [None]
  - ASTHENIA [None]
  - BLOOD BICARBONATE INCREASED [None]
  - BLOOD CALCIUM DECREASED [None]
  - CARDIAC ARREST [None]
  - DYSPNOEA [None]
  - HAEMOGLOBIN DECREASED [None]
  - HYPERGLYCAEMIA [None]
  - HYPOTENSION [None]
  - IDIOSYNCRATIC DRUG REACTION [None]
  - MALAISE [None]
  - PLATELET COUNT DECREASED [None]
  - RALES [None]
  - RENAL FAILURE ACUTE [None]
  - UNRESPONSIVE TO STIMULI [None]
  - VASODILATATION [None]
  - WHITE BLOOD CELL COUNT DECREASED [None]
